FAERS Safety Report 24726221 (Version 1)
Quarter: 2024Q4

REPORT INFORMATION
  Report Type: Spontaneous
  Country: US (occurrence: None)
  Receive Date: 20241211
  Receipt Date: 20241211
  Transmission Date: 20250114
  Serious: No
  Sender: Public
  Company Number: None

PATIENT
  Age: 28 Year
  Sex: Female

DRUGS (1)
  1. ADBRY [Suspect]
     Active Substance: TRALOKINUMAB-LDRM
     Indication: Rheumatoid arthritis
     Dosage: INJECT 300MG (1 PEN) SUBCUTANEOUSLY EVERY OTHER WEEK    AS DIRECTED?
     Route: 058
     Dates: start: 202312

REACTIONS (2)
  - Illness [None]
  - Therapy interrupted [None]
